FAERS Safety Report 9550039 (Version 2)
Quarter: 2013Q4

REPORT INFORMATION
  Report Type: Spontaneous
  Country: DE (occurrence: DE)
  Receive Date: 20130924
  Receipt Date: 20131023
  Transmission Date: 20140711
  Serious: Yes (Other)
  Sender: FDA-Public Use
  Company Number: DE-GLAXOSMITHKLINE-D0081186A

PATIENT
  Age: 50 Year
  Sex: Male

DRUGS (2)
  1. ELONTRIL [Suspect]
     Indication: PROPHYLAXIS
     Dosage: 150MG PER DAY
     Route: 048
  2. ATOSIL [Concomitant]
     Dosage: 25MG AS REQUIRED
     Route: 048

REACTIONS (1)
  - VIIth nerve paralysis [Recovered/Resolved]
